FAERS Safety Report 5891754-6 (Version None)
Quarter: 2008Q3

REPORT INFORMATION
  Report Type: 
  Country: None (occurrence: None)
  Receive Date: 20080922
  Receipt Date: 20080917
  Transmission Date: 20090109
  Serious: No
  Sender: FDA-Public Use
  Company Number: JP-ASTRAZENECA-2008AP06999

PATIENT
  Age: 55 Year
  Sex: Male
  Weight: 68 kg

DRUGS (1)
  1. CRESTOR [Suspect]
     Indication: LIPIDS ABNORMAL
     Route: 048
     Dates: start: 20080724, end: 20080829

REACTIONS (1)
  - HEPATIC FUNCTION ABNORMAL [None]
